FAERS Safety Report 9277739 (Version 2)
Quarter: 2013Q3

REPORT INFORMATION
  Report Type: Spontaneous
  Country: US (occurrence: US)
  Receive Date: 20130508
  Receipt Date: 20130814
  Transmission Date: 20140515
  Serious: No
  Sender: FDA-Public Use
  Company Number: US-BIOGENIDEC-2013BI039950

PATIENT
  Age: 57 Year
  Sex: Male

DRUGS (1)
  1. TYSABRI [Suspect]
     Indication: MULTIPLE SCLEROSIS
     Route: 042
     Dates: start: 20120927

REACTIONS (5)
  - Cognitive disorder [Not Recovered/Not Resolved]
  - Face injury [Recovered/Resolved]
  - Memory impairment [Not Recovered/Not Resolved]
  - Gait disturbance [Recovered/Resolved with Sequelae]
  - Facial bones fracture [Recovered/Resolved with Sequelae]
